FAERS Safety Report 4678628-3 (Version None)
Quarter: 2005Q2

REPORT INFORMATION
  Report Type: 
  Country: None (occurrence: None)
  Receive Date: 20050527
  Receipt Date: 20050518
  Transmission Date: 20051028
  Serious: Yes (Hospitalization, Other)
  Sender: FDA-Public Use
  Company Number: 2005076998

PATIENT
  Age: 75 Year
  Sex: Female

DRUGS (2)
  1. FELDENE [Suspect]
     Indication: OSTEOARTHRITIS
     Dosage: ORAL
     Route: 048
  2. COZAAR [Suspect]
     Indication: OSTEOARTHRITIS
     Dosage: (50 MG) ORAL
     Route: 048

REACTIONS (2)
  - RENAL ARTERY STENOSIS [None]
  - RENAL FAILURE ACUTE [None]
